FAERS Safety Report 6028123-4 (Version None)
Quarter: 2009Q1

REPORT INFORMATION
  Report Type: 
  Country: None (occurrence: None)
  Receive Date: 20090105
  Receipt Date: 20090105
  Transmission Date: 20090719
  Serious: Yes (Life-Threatening, Hospitalization, Disabling, Other)
  Sender: FDA-Public Use
  Company Number: None

PATIENT
  Sex: Male
  Weight: 64.4108 kg

DRUGS (6)
  1. PROPAFENONE HCL [Suspect]
     Indication: ATRIAL FIBRILLATION
     Dosage: 3 DAILY - 225 MG MORN-NOON-NIGHT ORAL
     Route: 048
     Dates: start: 20020328
  2. WARFARIN [Concomitant]
  3. ASPIRIN [Concomitant]
  4. DIOVAN [Concomitant]
  5. AMLODIPINE [Concomitant]
  6. LASIX [Concomitant]

REACTIONS (5)
  - ATRIAL FIBRILLATION [None]
  - CARDIAC FAILURE [None]
  - FALL [None]
  - MYOCARDIAL INFARCTION [None]
  - SYNCOPE [None]
